FAERS Safety Report 14224628 (Version 1)
Quarter: 2017Q4

REPORT INFORMATION
  Report Type: Spontaneous
  Country: DE (occurrence: DE)
  Receive Date: 20171127
  Receipt Date: 20171127
  Transmission Date: 20180321
  Serious: Yes (Life-Threatening, Hospitalization)
  Sender: FDA-Public Use
  Company Number: DE-AMGEN-DEUSP2017177020

PATIENT
  Age: 58 Year
  Sex: Female

DRUGS (1)
  1. PARSABIV [Suspect]
     Active Substance: ETELCALCETIDE HYDROCHLORIDE
     Indication: PRODUCT USED FOR UNKNOWN INDICATION
     Dosage: 5 MG, UNK
     Route: 065

REACTIONS (6)
  - Migraine [Unknown]
  - Nausea [Unknown]
  - Decreased appetite [Unknown]
  - Blood potassium increased [Unknown]
  - Gait inability [Unknown]
  - Vomiting [Unknown]

NARRATIVE: CASE EVENT DATE: 2017
